FAERS Safety Report 12702881 (Version 2)
Quarter: 2016Q4

REPORT INFORMATION
  Report Type: Spontaneous
  Country: US (occurrence: US)
  Receive Date: 20160831
  Receipt Date: 20161026
  Transmission Date: 20170207
  Serious: Yes (Other)
  Sender: FDA-Public Use
  Company Number: US-TEVA-689469USA

PATIENT
  Age: 63 Year
  Sex: Female
  Weight: 53.94 kg

DRUGS (13)
  1. CALCIUM 600 + D3 [Concomitant]
  2. PERTUZUMAB [Suspect]
     Active Substance: PERTUZUMAB
     Route: 065
     Dates: start: 20140116
  3. XELODA [Suspect]
     Active Substance: CAPECITABINE
     Route: 065
     Dates: end: 201602
  4. FASLODEX [Suspect]
     Active Substance: FULVESTRANT
     Route: 065
  5. VITAMIN B COMPLEX [Concomitant]
     Active Substance: CYANOCOBALAMIN\DEXPANTHENOL\NIACINAMIDE\PYRIDOXINE HYDROCHLORIDE\RIBOFLAVIN 5^-PHOSPHATE SODIUM\THIAMINE HYDROCHLORIDE\VITAMIN B COMPLEX
  6. HERCEPTIN [Suspect]
     Active Substance: TRASTUZUMAB
     Route: 065
     Dates: start: 20131228
  7. AFINITOR [Suspect]
     Active Substance: EVEROLIMUS
     Dates: start: 201602, end: 2016
  8. AFINITOR [Suspect]
     Active Substance: EVEROLIMUS
     Dates: start: 2016
  9. TAMOXIFEN [Suspect]
     Active Substance: TAMOXIFEN
     Route: 065
     Dates: start: 20131210, end: 20140520
  10. EXEMESTANE. [Suspect]
     Active Substance: EXEMESTANE
     Dates: start: 201602
  11. MULTIVITAMIN [Concomitant]
     Active Substance: VITAMINS
  12. KADCYLA [Suspect]
     Active Substance: ADO-TRASTUZUMAB EMTANSINE
     Route: 065
     Dates: start: 20140520
  13. ARIMIDEX [Suspect]
     Active Substance: ANASTROZOLE
     Route: 065
     Dates: start: 20140520

REACTIONS (11)
  - Anal incontinence [Unknown]
  - Adjustment disorder with depressed mood [Unknown]
  - White blood cell count decreased [Unknown]
  - Neoplasm progression [Unknown]
  - Fatigue [Unknown]
  - Hypoaesthesia oral [Recovered/Resolved]
  - Carbohydrate antigen 15-3 [Unknown]
  - Diarrhoea [Unknown]
  - Sleep disorder [Unknown]
  - Neuropathy peripheral [Not Recovered/Not Resolved]
  - Neutrophil count abnormal [Unknown]

NARRATIVE: CASE EVENT DATE: 2016
